FAERS Safety Report 4680204-3 (Version None)
Quarter: 2005Q2

REPORT INFORMATION
  Report Type: 
  Country: None (occurrence: None)
  Receive Date: 20050531
  Receipt Date: 20041202
  Transmission Date: 20051028
  Serious: Yes (Hospitalization)
  Sender: FDA-Public Use
  Company Number: NL-2004-026365

PATIENT
  Age: 77 Year
  Sex: Male
  Weight: 70 kg

DRUGS (16)
  1. QUADRAMET [Suspect]
     Indication: PROSTATE CANCER METASTATIC
     Dosage: 18.5  MBQ, INTRAVENOUS
     Route: 042
     Dates: start: 20040330, end: 20040330
  2. QUADRAMET [Suspect]
     Indication: PROSTATE CANCER METASTATIC
     Dosage: 18.5  MBQ, INTRAVENOUS
     Route: 042
     Dates: start: 20040413, end: 20040413
  3. ZOMETA [Suspect]
     Dosage: 1 DOSE
     Dates: start: 20040411, end: 20040411
  4. ZOMETA [Suspect]
     Dosage: 1 DOSE
     Dates: start: 20050511, end: 20040511
  5. BENALAPRIL (ENALAPRIL) [Concomitant]
  6. AMLODIPINE [Concomitant]
  7. CHLORTALIDONE (CHLORTALIDONE) [Concomitant]
  8. CARBASALATAE CALCIUM (CARBASALATAE CALCIUM) [Concomitant]
  9. GOSERELIN (GOSERELIN) [Concomitant]
  10. ETALPHA (ALFACALICIDOL) [Concomitant]
  11. VITAMIN E           /GFR/ (HERBAL OIL NOS) [Concomitant]
  12. ASCORBIC ACID [Concomitant]
  13. VITAMIN B COMPLEX CAP [Concomitant]
  14. VITAMIN A (RETIONL) [Concomitant]
  15. VISCUM ALBUM EXTRACT   (VISCUM ALBUM EXTRACT) [Concomitant]
  16. SELENIUM SULFIDE [Suspect]
     Dosage: 50 UG
     Route: 048
     Dates: end: 20030101

REACTIONS (2)
  - DISEASE PROGRESSION [None]
  - PARESIS [None]
